FAERS Safety Report 4290442-X (Version None)
Quarter: 2004Q1

REPORT INFORMATION
  Report Type: 
  Country: None (occurrence: None)
  Receive Date: 20040210
  Receipt Date: 20031113
  Transmission Date: 20041129
  Serious: Yes (Other)
  Sender: FDA-Public Use
  Company Number: WAES 0311USA01529

PATIENT
  Age: 60 Year
  Sex: Male

DRUGS (10)
  1. ASPIRIN [Concomitant]
  2. LIPITOR [Concomitant]
  3. DIGOXIN [Concomitant]
  4. VASOTEC [Concomitant]
     Route: 048
  5. ZETIA [Suspect]
     Indication: HYPERCHOLESTEROLAEMIA
     Route: 048
     Dates: start: 20030811, end: 20031104
  6. ZETIA [Suspect]
     Route: 048
     Dates: start: 20031107
  7. HYDROCHLOROTHIAZIDE AND TRIAMTERENE [Concomitant]
  8. NIASPAN [Concomitant]
  9. BETAPACE [Concomitant]
     Dates: end: 20031023
  10. BETAPACE [Concomitant]
     Dates: start: 20031024

REACTIONS (1)
  - VENTRICULAR TACHYCARDIA [None]
